FAERS Safety Report 14639657 (Version 1)
Quarter: 2018Q1

REPORT INFORMATION
  Report Type: Spontaneous
  Country: US (occurrence: US)
  Receive Date: 20180315
  Receipt Date: 20180315
  Transmission Date: 20180509
  Serious: No
  Sender: FDA-Public Use
  Company Number: US-TEVA-2018-US-860507

PATIENT
  Sex: Female

DRUGS (2)
  1. ZELASTINE [Concomitant]
  2. QNASL [Suspect]
     Active Substance: BECLOMETHASONE DIPROPIONATE
     Dosage: 160 MICROGRAM DAILY; 1 SPRAY IN EACH NOSTRIL

REACTIONS (2)
  - Product odour abnormal [Unknown]
  - Sinus headache [Unknown]
